FAERS Safety Report 13930277 (Version 3)
Quarter: 2017Q3

REPORT INFORMATION
  Report Type: Report from Study
  Country: DE (occurrence: DE)
  Receive Date: 20170901
  Receipt Date: 20170925
  Transmission Date: 20171127
  Serious: Yes (Hospitalization)
  Sender: FDA-Public Use
  Company Number: PHHY2017DE126493

PATIENT
  Sex: Male
  Weight: 93 kg

DRUGS (25)
  1. COSENTYX [Suspect]
     Active Substance: SECUKINUMAB
     Dosage: 300 MG PER APPLICATION
     Route: 065
     Dates: start: 20161023
  2. COSENTYX [Suspect]
     Active Substance: SECUKINUMAB
     Dosage: 300 MG PER APPLICATION
     Route: 065
     Dates: start: 20170603
  3. METFORMIN [Concomitant]
     Active Substance: METFORMIN HYDROCHLORIDE
     Indication: TYPE 2 DIABETES MELLITUS
     Dosage: 0.5 DF (1/2-0-1/2 OF 1000), BID
     Route: 065
     Dates: end: 20170824
  4. COSENTYX [Suspect]
     Active Substance: SECUKINUMAB
     Dosage: 150 MG PER APPLICATION
     Route: 065
     Dates: start: 20160209
  5. COSENTYX [Suspect]
     Active Substance: SECUKINUMAB
     Dosage: 150 MG PER APPLICATION
     Route: 065
     Dates: start: 20160223
  6. COSENTYX [Suspect]
     Active Substance: SECUKINUMAB
     Dosage: 300 MG PER APPLICATION
     Route: 065
     Dates: start: 20160823
  7. COSENTYX [Suspect]
     Active Substance: SECUKINUMAB
     Dosage: 300 MG PER APPLICATION
     Route: 065
     Dates: start: 20160923
  8. COSENTYX [Suspect]
     Active Substance: SECUKINUMAB
     Dosage: 300 MG PER APPLICATION
     Route: 065
     Dates: start: 20170123
  9. COSENTYX [Suspect]
     Active Substance: SECUKINUMAB
     Dosage: 150 MG PER APPLICATION
     Route: 065
     Dates: start: 20160423
  10. COSENTYX [Suspect]
     Active Substance: SECUKINUMAB
     Dosage: 300 MG PER APPLICATION
     Route: 065
     Dates: start: 20160723
  11. COSENTYX [Suspect]
     Active Substance: SECUKINUMAB
     Dosage: 300 MG PER APPLICATION
     Route: 065
     Dates: start: 20161123
  12. COSENTYX [Suspect]
     Active Substance: SECUKINUMAB
     Dosage: 300 MG PER APPLICATION
     Route: 065
     Dates: start: 20170507
  13. LODOTRA [Concomitant]
     Active Substance: PREDNISONE
     Indication: PSORIATIC ARTHROPATHY
     Dosage: 2 MG, QD
     Route: 048
     Dates: start: 2012
  14. COSENTYX [Suspect]
     Active Substance: SECUKINUMAB
     Dosage: 300 MG PER APPLICATION
     Route: 065
     Dates: start: 20161223
  15. COSENTYX [Suspect]
     Active Substance: SECUKINUMAB
     Dosage: 300 MG PER APPLICATION
     Route: 065
     Dates: start: 20170222, end: 20170222
  16. COSENTYX [Suspect]
     Active Substance: SECUKINUMAB
     Dosage: 150 MG PER APPLICATION
     Route: 065
     Dates: start: 20160202
  17. COSENTYX [Suspect]
     Active Substance: SECUKINUMAB
     Dosage: 150 MG PER APPLICATION
     Route: 065
     Dates: start: 20160623
  18. COSENTYX [Suspect]
     Active Substance: SECUKINUMAB
     Dosage: 150 MG PER APPLICATION
     Route: 065
     Dates: start: 20160216
  19. COSENTYX [Suspect]
     Active Substance: SECUKINUMAB
     Dosage: 150 MG PER APPLICATION
     Route: 065
     Dates: start: 20160323
  20. COSENTYX [Suspect]
     Active Substance: SECUKINUMAB
     Dosage: 300 MG PER APPLICATION
     Route: 065
     Dates: start: 20170409
  21. LANTUS [Concomitant]
     Active Substance: INSULIN GLARGINE
     Indication: TYPE 2 DIABETES MELLITUS
     Dosage: ACCORDING TO PLAN (DETAILS WERE UNKNOWN)
     Route: 058
     Dates: start: 201201
  22. COSENTYX [Suspect]
     Active Substance: SECUKINUMAB
     Indication: PSORIATIC ARTHROPATHY
     Dosage: 150 MG PER APPLICATION
     Route: 065
     Dates: start: 20160126
  23. TELMISARTAN/HCT [Concomitant]
     Indication: HYPERTENSION
     Dosage: 1.5 DF, QD (1-0-1/2)
     Route: 048
     Dates: start: 2012
  24. COSENTYX [Suspect]
     Active Substance: SECUKINUMAB
     Dosage: 150 MG PER APPLICATION
     Route: 065
     Dates: start: 20160523
  25. DEFLATOP [Concomitant]
     Indication: PSORIATIC ARTHROPATHY
     Dosage: 1 MG, PRN
     Route: 061
     Dates: start: 20071213, end: 20170824

REACTIONS (2)
  - Metastases to liver [Not Recovered/Not Resolved]
  - Lung carcinoma cell type unspecified stage IV [Not Recovered/Not Resolved]

NARRATIVE: CASE EVENT DATE: 201705
